FAERS Safety Report 8704590 (Version 3)
Quarter: 2013Q3

REPORT INFORMATION
  Report Type: Report from Study
  Country: BR (occurrence: BR)
  Receive Date: 20120803
  Receipt Date: 20130808
  Transmission Date: 20140515
  Serious: Yes (Other)
  Sender: FDA-Public Use
  Company Number: PHHY2012BR066873

PATIENT
  Sex: Female
  Weight: 96 kg

DRUGS (4)
  1. DIOVAN HCT [Suspect]
     Indication: HYPERTENSION
     Dosage: 1 DF (320MG VALS/ 12.5MG HYDR), QD (IN THE MORNING)
     Route: 048
  2. DIOVAN HCT [Suspect]
     Dosage: 1 DF (320MG VALS/12.5MG HYDR), BID, 1 IN MORNING AND 1 AT NIGHT
     Route: 048
  3. PREDSIM [Concomitant]
     Dosage: 0.5 DF (5MG), DAILY
     Route: 048
  4. CHLOROQUINE [Concomitant]
     Indication: SYSTEMIC LUPUS ERYTHEMATOSUS
     Dosage: 1 DF, DAILY
     Route: 048

REACTIONS (6)
  - Diabetes mellitus [Recovering/Resolving]
  - Blood pressure inadequately controlled [Recovering/Resolving]
  - Malaise [Recovering/Resolving]
  - Flushing [Recovering/Resolving]
  - Feeling abnormal [Unknown]
  - Drug ineffective [Unknown]
